FAERS Safety Report 7795992-7 (Version None)
Quarter: 2011Q4

REPORT INFORMATION
  Report Type: 
  Country: None (occurrence: None)
  Receive Date: 20111004
  Receipt Date: 20110922
  Transmission Date: 20120403
  Serious: Yes (Other)
  Sender: FDA-Public Use
  Company Number: CA-CELGENEUS-028-C5013-11020830

PATIENT
  Sex: Male
  Weight: 63.5 kg

DRUGS (33)
  1. MULTI-VITAMINS [Concomitant]
     Indication: SUPPLEMENTATION THERAPY
     Route: 065
     Dates: start: 20090601
  2. ASCORBIC ACID [Concomitant]
     Indication: SUPPLEMENTATION THERAPY
     Route: 065
     Dates: start: 20090601, end: 20090901
  3. CLINDAMYCIN [Concomitant]
     Indication: PROPHYLAXIS
     Dosage: 600 MILLIGRAM
     Route: 065
     Dates: start: 20090921, end: 20090922
  4. VITAMIN B-12 [Concomitant]
     Indication: VITAMIN B12 DEFICIENCY
     Dosage: 100
     Route: 065
     Dates: start: 20110406
  5. LENALIDOMIDE [Suspect]
     Indication: MULTIPLE MYELOMA
     Dosage: 25 MILLIGRAM
     Route: 048
     Dates: start: 20090813
  6. DEXAMETHASONE [Suspect]
     Dosage: 40 MILLIGRAM
     Route: 065
     Dates: end: 20101230
  7. CIPROFLOXACIN [Concomitant]
     Dosage: 500 MILLIGRAM
     Route: 065
     Dates: start: 20090929, end: 20091001
  8. ASPIRIN [Concomitant]
     Dosage: 81 MILLIGRAM
     Route: 048
     Dates: start: 20090813, end: 20110105
  9. LAMIVUDINE [Concomitant]
     Indication: PROPHYLAXIS
     Dosage: 5-100 MG
     Route: 065
     Dates: start: 20090805
  10. IMODIUM [Concomitant]
     Dosage: 1-2
     Route: 065
     Dates: start: 20090924, end: 20090925
  11. ZOPLICIONE [Concomitant]
     Dosage: 3.75-7.5 MG
     Route: 065
     Dates: start: 20090921, end: 20090924
  12. ACETAMINOPHEN [Concomitant]
     Indication: PAIN
     Dosage: 500-1000 MG
     Route: 065
     Dates: start: 20090921, end: 20090924
  13. ACETAMINOPHEN [Concomitant]
  14. CEFTRIAXONE [Concomitant]
     Indication: PROPHYLAXIS
     Dosage: 1 GRAM
     Route: 065
     Dates: start: 20090922, end: 20090922
  15. MORPHINE [Concomitant]
     Indication: PAIN
     Dosage: 2-4 MG
     Route: 065
     Dates: start: 20090921, end: 20090924
  16. ADEFOVIR DIPIOVOXIL [Concomitant]
     Dosage: 10 MILLIGRAM
     Route: 065
     Dates: start: 20101021
  17. BIAXIN [Concomitant]
     Indication: UPPER RESPIRATORY TRACT INFECTION
     Dosage: 1 GRAM
     Route: 065
     Dates: start: 20100910, end: 20100917
  18. LENALIDOMIDE [Suspect]
     Dosage: 25 MILLIGRAM
     Route: 048
     Dates: end: 20101222
  19. AZITHROMYCIN [Concomitant]
     Indication: UPPER RESPIRATORY TRACT INFECTION
     Dosage: 250 MILLIGRAM
     Route: 065
     Dates: start: 20101223, end: 20101223
  20. AMPICILLIN SODIUM [Concomitant]
     Indication: PROPHYLAXIS
     Dosage: 2 GRAM
     Route: 065
     Dates: start: 20090922, end: 20090924
  21. PAMIDRONATE DISODIUM [Concomitant]
     Indication: PROPHYLAXIS
     Dosage: 90 MILLIGRAM
     Route: 065
     Dates: start: 20090812
  22. IRON [Concomitant]
     Route: 065
     Dates: start: 20090601
  23. IMODIUM [Concomitant]
     Dosage: 1-2
     Route: 065
     Dates: start: 20100201, end: 20100901
  24. DIMENHYDRINATE [Concomitant]
     Indication: NAUSEA
     Dosage: 25-50 MG
     Route: 065
     Dates: start: 20090921, end: 20090924
  25. CALCIUM CARBONATE [Concomitant]
     Indication: PROPHYLAXIS
     Dosage: 1000 MILLIGRAM
     Route: 065
     Dates: start: 20110108
  26. VITAMIN D [Concomitant]
     Indication: PROPHYLAXIS
     Dosage: 10000
     Route: 065
     Dates: start: 20110108
  27. DEXAMETHASONE [Suspect]
     Indication: MULTIPLE MYELOMA
     Dosage: 40 MILLIGRAM
     Route: 065
     Dates: start: 20090813
  28. VITAMIN B COMPLEX CAP [Concomitant]
     Indication: SUPPLEMENTATION THERAPY
     Route: 065
     Dates: start: 20090601, end: 20090901
  29. CIPROFLOXACIN [Concomitant]
     Indication: PROPHYLAXIS
     Dosage: 500 MILLIGRAM
     Route: 065
     Dates: start: 20090921, end: 20090922
  30. CIPROFLOXACIN [Concomitant]
     Dosage: 500 MILLIGRAM
     Route: 065
     Dates: start: 20100803, end: 20100809
  31. METRONIDAZOLE [Concomitant]
     Indication: PROPHYLAXIS
     Dosage: 500 MILLIGRAM
     Route: 065
     Dates: start: 20100803, end: 20100809
  32. AZITHROMYCIN [Concomitant]
     Dosage: 250 MILLIGRAM
     Route: 065
     Dates: start: 20101224, end: 20101227
  33. FERROUS FUMERATE [Concomitant]
     Dosage: 300 MILLIGRAM
     Route: 065
     Dates: start: 20110406

REACTIONS (1)
  - HEPATIC NEOPLASM MALIGNANT [None]
